FAERS Safety Report 8755899 (Version 3)
Quarter: 2012Q4

REPORT INFORMATION
  Report Type: 
  Country: US (occurrence: US)
  Receive Date: 20120827
  Receipt Date: 20121101
  Transmission Date: 20130627
  Serious: Yes (Hospitalization, Disabling, Other)
  Sender: FDA-Public Use
  Company Number: US-009507513-1111USA02617

PATIENT

DRUGS (8)
  1. FOSAMAX [Suspect]
     Indication: OSTEOPOROSIS
     Dosage: 70 mg, QW
     Route: 048
     Dates: start: 20070802, end: 20101129
  2. BONIVA [Suspect]
     Indication: OSTEOPOROSIS
     Route: 048
     Dates: start: 20061231, end: 20070701
  3. ACTONEL [Suspect]
     Indication: OSTEOPOROSIS
     Dosage: 35 mg, QW
     Route: 048
     Dates: start: 20050505
  4. FOSAMAX D [Suspect]
     Dosage: 70 mg, QW
     Route: 048
     Dates: start: 20080613
  5. FOSAMAX [Suspect]
     Dosage: 70 mg, QW
     Route: 048
     Dates: start: 20071228
  6. FOSAMAX [Suspect]
     Dosage: 70 mg, QW
     Dates: start: 20100522
  7. ROBAXIN [Concomitant]
  8. MEDROL DOSEPAK [Concomitant]

REACTIONS (33)
  - Femur fracture [Recovered/Resolved with Sequelae]
  - Inguinal hernia repair [Unknown]
  - Inguinal hernia [Unknown]
  - Gallbladder disorder [Unknown]
  - Anxiety [Unknown]
  - Osteoarthritis [Unknown]
  - Depression [Unknown]
  - Rales [Unknown]
  - Drug intolerance [Unknown]
  - Upper respiratory tract infection [Unknown]
  - Spinal osteoarthritis [Unknown]
  - Radiculopathy [Unknown]
  - Chronic obstructive pulmonary disease [Unknown]
  - Vitamin D deficiency [Unknown]
  - Hysterectomy [Unknown]
  - Cholelithiasis [Unknown]
  - Gallbladder disorder [Unknown]
  - Gastrointestinal disorder [Unknown]
  - Dilatation intrahepatic duct acquired [Unknown]
  - Bile duct obstruction [Unknown]
  - Diverticulum intestinal [Unknown]
  - Cystitis [Unknown]
  - Bladder disorder [Unknown]
  - Hepatic cyst [Unknown]
  - Liver disorder [Unknown]
  - Road traffic accident [Unknown]
  - Hand fracture [Unknown]
  - Rib fracture [Unknown]
  - Fall [Unknown]
  - Contusion [Unknown]
  - Osteopenia [Unknown]
  - Bursitis [Unknown]
  - Fall [Unknown]
